FAERS Safety Report 12770784 (Version 1)
Quarter: 2016Q3

REPORT INFORMATION
  Report Type: Spontaneous
  Country: US (occurrence: US)
  Receive Date: 20160919
  Receipt Date: 20160919
  Transmission Date: 20161109
  Serious: Yes (Hospitalization)
  Sender: FDA-Public Use
  Company Number: None

PATIENT
  Age: 90 Year
  Sex: Male

DRUGS (5)
  1. SPRYCEL [Suspect]
     Active Substance: DASATINIB
     Indication: MYELOID LEUKAEMIA
     Route: 048
     Dates: start: 201207
  2. MULIT CAP [Concomitant]
  3. FUROSEMIDE. [Concomitant]
     Active Substance: FUROSEMIDE
  4. WARFARIN [Concomitant]
     Active Substance: WARFARIN
  5. VITAMIN B12 [Concomitant]
     Active Substance: CYANOCOBALAMIN

REACTIONS (2)
  - Drug dose omission [None]
  - Pleural effusion [None]

NARRATIVE: CASE EVENT DATE: 201608
